FAERS Safety Report 11915366 (Version 2)
Quarter: 2016Q3

REPORT INFORMATION
  Report Type: Spontaneous
  Country: FR (occurrence: FR)
  Receive Date: 20160114
  Receipt Date: 20160902
  Transmission Date: 20161109
  Serious: Yes (Death, Life-Threatening, Congenital Anomaly, Other)
  Sender: FDA-Public Use
  Company Number: FR-BRISTOL-MYERS SQUIBB COMPANY-11527082

PATIENT
  Age: 0 Year
  Sex: Female
  Weight: 1 kg

DRUGS (5)
  1. NORVIR [Suspect]
     Active Substance: RITONAVIR
     Indication: PRODUCT USED FOR UNKNOWN INDICATION
     Dosage: EXPOSURE BEGAN AT CONCEPTION.
     Route: 064
     Dates: end: 20010825
  2. VIDEX [Suspect]
     Active Substance: DIDANOSINE
     Indication: PRODUCT USED FOR UNKNOWN INDICATION
     Dosage: EXPOSURE BEGAN AT CONCEPTION.
     Route: 064
     Dates: end: 20010825
  3. ZERIT [Suspect]
     Active Substance: STAVUDINE
     Indication: PRODUCT USED FOR UNKNOWN INDICATION
     Dosage: EXPOSURE BEGAN AT CONCEPTION.
     Route: 064
     Dates: end: 20010825
  4. INVIRASE [Suspect]
     Active Substance: SAQUINAVIR MESYLATE
     Indication: PRODUCT USED FOR UNKNOWN INDICATION
     Dosage: EXPOSURE BEGAN AT CONCEPTION.
     Route: 064
     Dates: end: 20010825
  5. BACTRIM [Concomitant]
     Active Substance: SULFAMETHOXAZOLE\TRIMETHOPRIM
     Indication: PRODUCT USED FOR UNKNOWN INDICATION
     Dosage: EXPOSURE DURING GESTATION.
     Route: 064

REACTIONS (6)
  - Heart disease congenital [Unknown]
  - Atrioventricular septal defect [Unknown]
  - Foetal exposure during pregnancy [Recovered/Resolved]
  - Death neonatal [Fatal]
  - Premature baby [Not Recovered/Not Resolved]
  - Trisomy 18 [Unknown]

NARRATIVE: CASE EVENT DATE: 2001
